FAERS Safety Report 18950091 (Version 1)
Quarter: 2021Q1

REPORT INFORMATION
  Report Type: Not Available
  Country: US (occurrence: US)
  Receive Date: 20210228
  Receipt Date: 20210228
  Transmission Date: 20210420
  Serious: No
  Sender: FDA-Public Use
  Company Number: US-NEUROCRINE BIOSCIENCES INC.-2021NBI00779

PATIENT
  Age: 82 Year
  Sex: Female

DRUGS (2)
  1. INGREZZA [Suspect]
     Active Substance: VALBENAZINE
     Indication: TARDIVE DYSKINESIA
     Route: 048
     Dates: start: 20200307, end: 20200314
  2. INGREZZA [Suspect]
     Active Substance: VALBENAZINE
     Dosage: IN THE MORNING
     Route: 048
     Dates: start: 20200315

REACTIONS (5)
  - Neck pain [Unknown]
  - Drooling [Unknown]
  - Tardive dyskinesia [Unknown]
  - Skin ulcer [Unknown]
  - Therapeutic product effect decreased [Unknown]
